FAERS Safety Report 14544344 (Version 1)
Quarter: 2018Q1

REPORT INFORMATION
  Report Type: Spontaneous
  Country: US (occurrence: US)
  Receive Date: 20180215
  Receipt Date: 20180215
  Transmission Date: 20180509
  Serious: No
  Sender: FDA-Public Use
  Company Number: None

PATIENT
  Age: 49 Year
  Sex: Female

DRUGS (1)
  1. EGRIFTA [Suspect]
     Active Substance: TESAMORELIN
     Indication: LIPODYSTROPHY ACQUIRED
     Route: 058
     Dates: start: 20180108, end: 20180212

REACTIONS (4)
  - Thirst [None]
  - Fall [None]
  - Pollakiuria [None]
  - Blood glucose increased [None]

NARRATIVE: CASE EVENT DATE: 20180214
